FAERS Safety Report 16062305 (Version 1)
Quarter: 2019Q1

REPORT INFORMATION
  Report Type: Spontaneous
  Country: US (occurrence: US)
  Receive Date: 20190312
  Receipt Date: 20190312
  Transmission Date: 20190418
  Serious: No
  Sender: FDA-Public Use
  Company Number: US-TEVA-2019-US-1014106

PATIENT
  Age: 12 Year
  Sex: Male

DRUGS (2)
  1. CLONIDINE TRANSDERMAL SYSTEM [Suspect]
     Active Substance: CLONIDINE
     Indication: ATTENTION DEFICIT/HYPERACTIVITY DISORDER
     Route: 062
     Dates: start: 201812
  2. CLONIDINE TRANSDERMAL SYSTEM [Suspect]
     Active Substance: CLONIDINE
     Indication: ABNORMAL BEHAVIOUR

REACTIONS (4)
  - Application site pain [Unknown]
  - Product prescribing error [Unknown]
  - Product use in unapproved indication [Unknown]
  - Application site pruritus [Unknown]

NARRATIVE: CASE EVENT DATE: 201812
